FAERS Safety Report 6150906-0 (Version None)
Quarter: 2009Q2

REPORT INFORMATION
  Report Type: 
  Country: None (occurrence: None)
  Receive Date: 20090408
  Receipt Date: 20090323
  Transmission Date: 20091009
  Serious: No
  Sender: FDA-Public Use
  Company Number: 8044260

PATIENT
  Sex: Male
  Weight: 85 kg

DRUGS (1)
  1. KEPPRA [Suspect]
     Dosage: 500 MG 2/D ETR
     Dates: start: 20090313

REACTIONS (1)
  - WRONG TECHNIQUE IN DRUG USAGE PROCESS [None]
